FAERS Safety Report 6003261-0 (Version None)
Quarter: 2008Q4

REPORT INFORMATION
  Report Type: 
  Country: None (occurrence: None)
  Receive Date: 20081212
  Receipt Date: 20081128
  Transmission Date: 20090506
  Serious: Yes (Disabling, Other)
  Sender: FDA-Public Use
  Company Number: DSU-2008-02035

PATIENT
  Age: 45 Year
  Sex: Female
  Weight: 115 kg

DRUGS (1)
  1. OLMESARTAN MEDOXOMIL AND HYDROCHLOROTHIZIDE [Suspect]
     Indication: DRUG USE FOR UNKNOWN INDICATION
     Dosage: 40/12.5 MG (QD, PER ORAL
     Route: 048
     Dates: start: 20080901

REACTIONS (3)
  - BLOOD PRESSURE INCREASED [None]
  - HEADACHE [None]
  - OEDEMA PERIPHERAL [None]
